FAERS Safety Report 12336150 (Version 1)
Quarter: 2016Q2

REPORT INFORMATION
  Report Type: Spontaneous
  Country: US (occurrence: US)
  Receive Date: 20160505
  Receipt Date: 20160505
  Transmission Date: 20160815
  Serious: No
  Sender: FDA-Public Use
  Company Number: US-PFIZER INC-2016211882

PATIENT
  Age: 66 Year
  Sex: Female

DRUGS (1)
  1. ALPRAZOLAM. [Suspect]
     Active Substance: ALPRAZOLAM
     Indication: PAIN
     Dosage: 1/2 OF .5 MG TABLET BY MOUTH DAILY AS NEEDED
     Route: 048

REACTIONS (2)
  - Somnolence [Unknown]
  - Product use issue [Unknown]
